FAERS Safety Report 24610631 (Version 3)
Quarter: 2025Q1

REPORT INFORMATION
  Report Type: Spontaneous
  Country: US (occurrence: US)
  Receive Date: 20241112
  Receipt Date: 20250312
  Transmission Date: 20250409
  Serious: No
  Sender: MERCK SHARP & DOHME LLC
  Company Number: None

PATIENT
  Sex: Female
  Weight: 71.202 kg

DRUGS (35)
  1. SOTATERCEPT [Suspect]
     Active Substance: SOTATERCEPT
     Indication: Product used for unknown indication
     Dates: start: 2024
  2. SOTATERCEPT [Suspect]
     Active Substance: SOTATERCEPT
  3. SOTATERCEPT [Suspect]
     Active Substance: SOTATERCEPT
  4. SOTATERCEPT [Suspect]
     Active Substance: SOTATERCEPT
  5. TYVASO DPI [Suspect]
     Active Substance: TREPROSTINIL
     Indication: Pulmonary arterial hypertension
     Dosage: DOSE DESCRIPTION : 72 MICROGRAM, QID (12 BREATHS)?DAILY DOSE : 288 MICROGRAM?CONCENTRATION: 0.6 M...
     Route: 055
     Dates: start: 20230927
  6. LISINOPRIL [Concomitant]
     Active Substance: LISINOPRIL
  7. LOPERAMIDE HYDROCHLORIDE [Concomitant]
     Active Substance: LOPERAMIDE HYDROCHLORIDE
     Indication: Diarrhoea
  8. OFEV [Concomitant]
     Active Substance: NINTEDANIB
  9. VITAMIN D3 [Concomitant]
     Active Substance: CHOLECALCIFEROL
  10. ATORVASTATIN CALCIUM [Concomitant]
     Active Substance: ATORVASTATIN CALCIUM
  11. OXYGEN [Concomitant]
     Active Substance: OXYGEN
  12. OMEPRAZOLE [Concomitant]
     Active Substance: OMEPRAZOLE
  13. ASPIRIN [Concomitant]
     Active Substance: ASPIRIN
  14. JARDIANCE [Concomitant]
     Active Substance: EMPAGLIFLOZIN
  15. PREDNISONE [Concomitant]
     Active Substance: PREDNISONE
  16. MECLIZINE HYDROCHLORIDE [Concomitant]
     Active Substance: MECLIZINE HYDROCHLORIDE
  17. FUROSEMIDE [Concomitant]
     Active Substance: FUROSEMIDE
  18. SODIUM FLUORIDE [Concomitant]
     Active Substance: SODIUM FLUORIDE
  19. ALBUTEROL\IPRATROPIUM [Concomitant]
     Active Substance: ALBUTEROL\IPRATROPIUM
  20. TRIAMCINOLONE ACETONIDE [Concomitant]
     Active Substance: TRIAMCINOLONE ACETONIDE
  21. ALBUTEROL SULFATE [Concomitant]
     Active Substance: ALBUTEROL SULFATE
  22. FLUTICASONE PROPIONATE [Concomitant]
     Active Substance: FLUTICASONE PROPIONATE
  23. PANTOPRAZOLE SODIUM [Concomitant]
     Active Substance: PANTOPRAZOLE SODIUM
  24. SILDENAFIL CITRATE [Concomitant]
     Active Substance: SILDENAFIL CITRATE
  25. RIABNI [Concomitant]
     Active Substance: RITUXIMAB-ARRX
  26. ALENDRONATE SODIUM [Concomitant]
     Active Substance: ALENDRONATE SODIUM
  27. TRAMADOL HCL [Concomitant]
     Active Substance: TRAMADOL HYDROCHLORIDE
  28. AMOXICILLIN AND CLAVULANATE POTASSIUM [Concomitant]
     Active Substance: AMOXICILLIN\CLAVULANATE POTASSIUM
  29. MONTELUKAST SODIUM [Concomitant]
     Active Substance: MONTELUKAST SODIUM
  30. CYCLOBENZAPRINE HYDROCHLORIDE [Concomitant]
     Active Substance: CYCLOBENZAPRINE HYDROCHLORIDE
  31. ADVAIR DISKUS [Concomitant]
     Active Substance: FLUTICASONE PROPIONATE\SALMETEROL XINAFOATE
  32. LORATADINE [Concomitant]
     Active Substance: LORATADINE
  33. SYMBICORT [Concomitant]
     Active Substance: BUDESONIDE\FORMOTEROL FUMARATE DIHYDRATE
  34. NAPROXEN [Concomitant]
     Active Substance: NAPROXEN
  35. VAZALORE [Concomitant]
     Active Substance: ASPIRIN

REACTIONS (2)
  - Dizziness [Recovered/Resolved]
  - Gingival pain [Unknown]

NARRATIVE: CASE EVENT DATE: 20240101
